FAERS Safety Report 6837849-1 (Version None)
Quarter: 2010Q3

REPORT INFORMATION
  Report Type: 
  Country: None (occurrence: None)
  Receive Date: 20100713
  Receipt Date: 20070523
  Transmission Date: 20110219
  Serious: No
  Sender: FDA-Public Use
  Company Number: US-PFIZER INC-2007042539

PATIENT
  Sex: Female
  Weight: 79.5 kg

DRUGS (6)
  1. CHANTIX [Suspect]
     Indication: SMOKING CESSATION THERAPY
     Dates: start: 20070519
  2. ANASTROZOLE [Concomitant]
  3. LOTREL [Concomitant]
     Indication: HYPERTENSION
  4. NEXIUM [Concomitant]
     Indication: GASTROOESOPHAGEAL REFLUX DISEASE
  5. ZOLOFT [Concomitant]
  6. WELLBUTRIN [Concomitant]

REACTIONS (1)
  - NAUSEA [None]
